FAERS Safety Report 7792059-9 (Version None)
Quarter: 2011Q3

REPORT INFORMATION
  Report Type: 
  Country: None (occurrence: None)
  Receive Date: 20110929
  Receipt Date: 20110919
  Transmission Date: 20111222
  Serious: Yes (Other)
  Sender: FDA-Public Use
  Company Number: AUR-APL-2011-05142

PATIENT
  Age: 7 Year
  Sex: Male

DRUGS (11)
  1. DEXMETHYLPHENIDATE (DEXMETHYLPHENIDATE) [Concomitant]
  2. SERTRALINE HYDROCHLORIDE [Suspect]
     Indication: ANXIETY
  3. LISDEXAMFETAMINE DIMESYLATE [Suspect]
     Indication: ATTENTION DEFICIT/HYPERACTIVITY DISORDER
  4. MIRTAZAPINE [Concomitant]
  5. VENLAFAXINE [Suspect]
     Indication: PRODUCT USED FOR UNKNOWN INDICATION
  6. ARIPIPRAZOLE [Suspect]
     Indication: TIC
     Dosage: (1 MG, 1 D
  7. ARIPIPRAZOLE [Suspect]
     Indication: OBSESSIVE-COMPULSIVE DISORDER
     Dosage: (1 MG, 1 D
  8. FLUOXETINE HYDROCHLORIDE [Concomitant]
  9. RISPERIDONE [Suspect]
     Indication: PRODUCT USED FOR UNKNOWN INDICATION
     Dosage: (2 MG, 1 D)
  10. ATOMOXETINE HCL [Suspect]
     Indication: ATTENTION DEFICIT/HYPERACTIVITY DISORDER
  11. MEMANTINE HCL [Suspect]
     Indication: OBSESSIVE-COMPULSIVE DISORDER
     Dosage: (10 MG, 1 D)

REACTIONS (3)
  - AGGRESSION [None]
  - SEDATION [None]
  - WEIGHT INCREASED [None]
